FAERS Safety Report 16051336 (Version 7)
Quarter: 2020Q1

REPORT INFORMATION
  Report Type: Spontaneous
  Country: DE (occurrence: DE)
  Receive Date: 20190308
  Receipt Date: 20200308
  Transmission Date: 20200409
  Serious: Yes (Other)
  Sender: FDA-Public Use
  Company Number: DE-AUROBINDO-AUR-APL-2018-037720

PATIENT
  Sex: Female
  Weight: 66 kg

DRUGS (16)
  1. EXEMESTANE. [Suspect]
     Active Substance: EXEMESTANE
     Indication: BREAST CANCER
     Dosage: UNK
     Route: 065
     Dates: start: 20180609, end: 20190913
  2. KISQALI [Suspect]
     Active Substance: RIBOCICLIB
     Indication: BREAST CANCER
     Dosage: 600 MILLIGRAM, DAILY (QD)
     Route: 048
     Dates: start: 20180519, end: 20180907
  3. KISQALI [Suspect]
     Active Substance: RIBOCICLIB
     Dosage: 600 MILLIGRAM, ONCE A DAY
     Route: 048
     Dates: start: 20181117, end: 20190125
  4. SAROTEN [Suspect]
     Active Substance: AMITRIPTYLINE
     Dosage: 4 MILLIGRAM, ONCE A DAY (QD)
     Route: 065
     Dates: start: 20180828
  5. LEVOTHYROXINE. [Concomitant]
     Active Substance: LEVOTHYROXINE
     Indication: HYPOTHYROIDISM
     Dosage: UNK
     Route: 065
  6. LETROZOLE. [Suspect]
     Active Substance: LETROZOLE
     Indication: BREAST CANCER
     Dosage: 2.5 MILLIGRAM, DAILY (QD)
     Route: 048
     Dates: start: 20180525
  7. METOHEXAL [Concomitant]
     Active Substance: METOPROLOL
     Indication: HYPERTENSION
     Dosage: UNK
     Route: 065
  8. KISQALI [Suspect]
     Active Substance: RIBOCICLIB
     Indication: BREAST CANCER METASTATIC
     Dosage: UNK
     Route: 048
     Dates: start: 20180608
  9. KISQALI [Suspect]
     Active Substance: RIBOCICLIB
     Dosage: UNK
     Route: 048
     Dates: start: 20180620
  10. TORASEMIDE [Concomitant]
     Active Substance: TORSEMIDE
     Indication: HYPERTENSION
     Dosage: UNK
     Route: 065
  11. KISQALI [Suspect]
     Active Substance: RIBOCICLIB
     Dosage: 400 MILLIGRAM, ONCE A DAY (QD)
     Route: 048
     Dates: start: 20180908, end: 20181116
  12. FULVESTRANT. [Suspect]
     Active Substance: FULVESTRANT
     Indication: BREAST CANCER
     Dosage: 500 MILLIGRAM, EVERY 4 WEEK
     Route: 030
     Dates: start: 20190924
  13. KISQALI [Suspect]
     Active Substance: RIBOCICLIB
     Dosage: 400 MILLIGRAM, ONCE A DAY
     Route: 048
     Dates: start: 20190126
  14. EXEMESTANE. [Suspect]
     Active Substance: EXEMESTANE
     Indication: BREAST CANCER METASTATIC
     Dosage: 25 MILLIGRAM, ONCE A DAY (QD)
     Route: 048
     Dates: start: 20180505
  15. KISQALI [Suspect]
     Active Substance: RIBOCICLIB
     Dosage: 3 MILLIGRAM
     Route: 048
     Dates: start: 20180620
  16. SAROTEN [Suspect]
     Active Substance: AMITRIPTYLINE
     Indication: DEPRESSION
     Dosage: 4 MILLIGRAM, ONCE A DAY
     Route: 065
     Dates: start: 20180620

REACTIONS (17)
  - Dizziness [Not Recovered/Not Resolved]
  - Visual impairment [Not Recovered/Not Resolved]
  - Fatigue [Not Recovered/Not Resolved]
  - Alopecia [Not Recovered/Not Resolved]
  - Restlessness [Recovered/Resolved]
  - Anaemia [Recovering/Resolving]
  - General physical health deterioration [Unknown]
  - Tremor [Recovered/Resolved]
  - Nausea [Recovered/Resolved]
  - Arthralgia [Recovered/Resolved]
  - Depression [Recovered/Resolved]
  - Decreased appetite [Recovering/Resolving]
  - Constipation [Recovered/Resolved]
  - Abdominal pain upper [Not Recovered/Not Resolved]
  - Weight decreased [Not Recovered/Not Resolved]
  - Bone pain [Recovered/Resolved]
  - Diarrhoea [Recovered/Resolved]

NARRATIVE: CASE EVENT DATE: 20180505
